FAERS Safety Report 16213790 (Version 1)
Quarter: 2019Q2

REPORT INFORMATION
  Report Type: Spontaneous
  Country: US (occurrence: US)
  Receive Date: 20190418
  Receipt Date: 20190418
  Transmission Date: 20190711
  Serious: Yes (Other)
  Sender: FDA-Public Use
  Company Number: US-NAPPMUNDI-USA-2019-0146888

PATIENT
  Age: 62 Year
  Sex: Female

DRUGS (2)
  1. OXYCONTIN [Suspect]
     Active Substance: OXYCODONE HYDROCHLORIDE
     Dosage: 80 MG (10 TABLETS), DAILY
     Route: 048
     Dates: end: 20181231
  2. OXYCONTIN [Suspect]
     Active Substance: OXYCODONE HYDROCHLORIDE
     Indication: PROCEDURAL PAIN
     Dosage: 80 MG (12-14 TABLETS), DAILY
     Route: 048
     Dates: start: 1999

REACTIONS (8)
  - Blood potassium decreased [Recovered/Resolved]
  - Piloerection [Recovered/Resolved]
  - Diarrhoea [Recovered/Resolved]
  - Drug dose titration not performed [Recovered/Resolved]
  - Drug withdrawal syndrome [Recovered/Resolved]
  - Vomiting [Recovered/Resolved]
  - Unevaluable event [Recovered/Resolved]
  - Therapeutic product effect decreased [Unknown]

NARRATIVE: CASE EVENT DATE: 20181231
